FAERS Safety Report 25259031 (Version 1)
Quarter: 2025Q2

REPORT INFORMATION
  Report Type: Spontaneous
  Country: US (occurrence: None)
  Receive Date: 20250430
  Receipt Date: 20250430
  Transmission Date: 20250716
  Serious: Yes (Death)
  Sender: FDA-CTU
  Company Number: None

PATIENT
  Age: 52 Year
  Sex: Male

DRUGS (2)
  1. ATAZANAVIR [Suspect]
     Active Substance: ATAZANAVIR
     Indication: HIV infection
     Dosage: FREQUENCY : DAILY;?
     Dates: start: 20231117, end: 20250419
  2. PREZCOBIX [Suspect]
     Active Substance: COBICISTAT\DARUNAVIR ETHANOLATE
     Indication: HIV infection
     Dosage: OTHER STRENGTH : 800-150MG;?FREQUENCY : DAILY;?
     Route: 048
     Dates: start: 20231117, end: 20250419

REACTIONS (1)
  - Pneumonia [None]

NARRATIVE: CASE EVENT DATE: 20250419
